FAERS Safety Report 20419022 (Version 2)
Quarter: 2022Q1

REPORT INFORMATION
  Report Type: Spontaneous
  Country: FR (occurrence: FR)
  Receive Date: 20220203
  Receipt Date: 20220209
  Transmission Date: 20220423
  Serious: Yes (Other)
  Sender: FDA-Public Use
  Company Number: FR-AFSSAPS-AVBX20220022

PATIENT
  Age: 38 Year
  Sex: Female

DRUGS (2)
  1. ACETAMINOPHEN [Suspect]
     Active Substance: ACETAMINOPHEN
     Dosage: 3 GRAM, ONCE A DAY
     Route: 048
     Dates: start: 202110
  2. TRAMADOL [Suspect]
     Active Substance: TRAMADOL
     Indication: Drug use disorder
     Dosage: 500 MILLIGRAM, ONCE A DAY
     Route: 048
     Dates: start: 202110

REACTIONS (1)
  - Drug use disorder [Not Recovered/Not Resolved]

NARRATIVE: CASE EVENT DATE: 20211001
